FAERS Safety Report 6160721-X (Version None)
Quarter: 2009Q2

REPORT INFORMATION
  Report Type: 
  Country: None (occurrence: None)
  Receive Date: 20090420
  Receipt Date: 20090409
  Transmission Date: 20091009
  Serious: Yes (Other)
  Sender: FDA-Public Use
  Company Number: US-PFIZER INC-2009197372

PATIENT
  Sex: Female
  Weight: 149.6 kg

DRUGS (3)
  1. NARDIL [Suspect]
     Indication: AGORAPHOBIA
     Dosage: 15 MG, 4X/DAY
     Route: 048
     Dates: start: 19910101
  2. NARDIL [Suspect]
     Indication: PANIC DISORDER
  3. XANAX [Concomitant]
     Dosage: UNK

REACTIONS (3)
  - GALLBLADDER OPERATION [None]
  - OVARIAN CANCER [None]
  - SLEEP DISORDER [None]
